FAERS Safety Report 7877820-4 (Version None)
Quarter: 2011Q4

REPORT INFORMATION
  Report Type: 
  Country: None (occurrence: None)
  Receive Date: 20111031
  Receipt Date: 20111031
  Transmission Date: 20120403
  Serious: Yes (Life-Threatening)
  Sender: FDA-Public Use
  Company Number: None

PATIENT
  Age: 56 Year
  Sex: Female
  Weight: 82.553 kg

DRUGS (1)
  1. OXCARBAZEPINE [Suspect]
     Indication: ANALGESIC THERAPY
     Dosage: 1 AFTER A WEEK 2 TABLETS
     Route: 048
     Dates: start: 20111028, end: 20111028

REACTIONS (5)
  - BLOOD PRESSURE INCREASED [None]
  - FEELING ABNORMAL [None]
  - VISUAL ACUITY REDUCED [None]
  - HEADACHE [None]
  - MUSCLE SPASMS [None]
